FAERS Safety Report 11234273 (Version 1)
Quarter: 2015Q3

REPORT INFORMATION
  Report Type: Spontaneous
  Country: FR (occurrence: FR)
  Receive Date: 20150702
  Receipt Date: 20150702
  Transmission Date: 20151125
  Serious: Yes (Hospitalization)
  Sender: FDA-Public Use
  Company Number: FR-BIOGENIDEC-2015BI086002

PATIENT
  Age: 35 Year
  Sex: Female

DRUGS (6)
  1. TYSABRI [Suspect]
     Active Substance: NATALIZUMAB
     Indication: MULTIPLE SCLEROSIS
     Route: 042
     Dates: start: 20070703, end: 20150515
  2. PAROXETINE (DEROXAT) [Concomitant]
  3. SOLIFENACIN (VESICARE) [Concomitant]
  4. DOXAZOSIN (ZOXAN) [Concomitant]
  5. FOSFOMYCINE [Concomitant]
     Active Substance: FOSFOMYCIN
     Route: 048
  6. ETHINYLESTRADIOL 0.02MG/LEVONORGESTREL 0.1 MG(LEELOO) [Concomitant]
     Indication: ORAL CONTRACEPTION

REACTIONS (2)
  - Latent tuberculosis [Not Recovered/Not Resolved]
  - Cervical dysplasia [Unknown]

NARRATIVE: CASE EVENT DATE: 201409
